FAERS Safety Report 25758697 (Version 1)
Quarter: 2025Q3

REPORT INFORMATION
  Report Type: Spontaneous
  Country: US (occurrence: US)
  Receive Date: 20250904
  Receipt Date: 20250904
  Transmission Date: 20251021
  Serious: No
  Sender: SANOFI AVENTIS
  Company Number: US-SA-2025SA263014

PATIENT
  Sex: Male

DRUGS (11)
  1. DUPIXENT [Suspect]
     Active Substance: DUPILUMAB
     Indication: Essential hypertension
     Dosage: 300 MG, QW
     Route: 058
  2. FUROSEMIDE [Concomitant]
     Active Substance: FUROSEMIDE
  3. LATANOPROST [Concomitant]
     Active Substance: LATANOPROST
  4. NIFEDIPINE [Concomitant]
     Active Substance: NIFEDIPINE
  5. RABEPRAZOLE [Concomitant]
     Active Substance: RABEPRAZOLE
  6. TAMSULOSIN [Concomitant]
     Active Substance: TAMSULOSIN
  7. TRELEGY ELLIPTA [Concomitant]
     Active Substance: FLUTICASONE FUROATE\UMECLIDINIUM BROMIDE\VILANTEROL TRIFENATATE
  8. VALSARTAN [Concomitant]
     Active Substance: VALSARTAN
  9. WARFARIN SODIUM [Concomitant]
     Active Substance: WARFARIN SODIUM
  10. WARFARIN SODIUM [Concomitant]
     Active Substance: WARFARIN SODIUM
  11. ALBUTEROL SULFATE [Concomitant]
     Active Substance: ALBUTEROL SULFATE

REACTIONS (4)
  - Joint stiffness [Recovered/Resolved]
  - Hypoaesthesia [Recovered/Resolved]
  - Arthralgia [Recovered/Resolved]
  - Product use in unapproved indication [Unknown]
